FAERS Safety Report 7808279-0 (Version None)
Quarter: 2011Q4

REPORT INFORMATION
  Report Type: 
  Country: None (occurrence: None)
  Receive Date: 20111012
  Receipt Date: 20111003
  Transmission Date: 20120403
  Serious: Yes (Hospitalization, Other)
  Sender: FDA-Public Use
  Company Number: US-BIOGENIDEC-2011BI035173

PATIENT
  Age: 48 Year
  Sex: Female

DRUGS (3)
  1. MAXALT [Concomitant]
  2. MEDICATION (NOS) [Concomitant]
  3. AVONEX [Suspect]
     Indication: MULTIPLE SCLEROSIS
     Route: 030
     Dates: start: 19980630

REACTIONS (3)
  - CONVULSION [None]
  - ADVERSE DRUG REACTION [None]
  - MOBILITY DECREASED [None]
